FAERS Safety Report 8808572 (Version 1)
Quarter: 2012Q4

REPORT INFORMATION
  Report Type: Spontaneous
  Country: US (occurrence: None)
  Receive Date: 20120920
  Receipt Date: 20120920
  Transmission Date: 20130627
  Serious: No
  Sender: FDA-Public Use
  Company Number: None

PATIENT

DRUGS (2)
  1. FUROSEMIDE (FUROSEMIDE) [Suspect]
     Dosage: Injectable
  2. FUROSEMIDE [Suspect]

REACTIONS (2)
  - Acute respiratory failure [None]
  - Post procedural complication [None]
